FAERS Safety Report 24879817 (Version 1)
Quarter: 2025Q1

REPORT INFORMATION
  Report Type: Report from Study
  Country: US (occurrence: US)
  Receive Date: 20250123
  Receipt Date: 20250123
  Transmission Date: 20250409
  Serious: Yes (Death, Other)
  Sender: ALEXION PHARMACEUTICALS
  Company Number: US-AstraZeneca-CH-00790157A

PATIENT

DRUGS (9)
  1. OSIMERTINIB [Suspect]
     Active Substance: OSIMERTINIB
     Indication: Non-small cell lung cancer
     Dosage: 80 MILLIGRAM, QD
  2. GABAPENTIN [Concomitant]
     Active Substance: GABAPENTIN
     Route: 065
  3. VALACYCLOVIR [Concomitant]
     Active Substance: VALACYCLOVIR HYDROCHLORIDE
     Route: 065
  4. XARELTO [Concomitant]
     Active Substance: RIVAROXABAN
     Route: 065
  5. VITAMIN D3 [Concomitant]
     Active Substance: CHOLECALCIFEROL
     Route: 065
  6. CALCIUM CARBONATE [Concomitant]
     Active Substance: CALCIUM CARBONATE
     Route: 065
  7. MELATONIN [Concomitant]
     Active Substance: MELATONIN
     Route: 065
  8. FISH OIL [Concomitant]
     Active Substance: FISH OIL
     Route: 065
  9. FOLIC ACID [Concomitant]
     Active Substance: FOLIC ACID
     Route: 065

REACTIONS (2)
  - Pneumonia [Fatal]
  - Urinary tract infection [Fatal]
